FAERS Safety Report 26184568 (Version 1)
Quarter: 2025Q4

REPORT INFORMATION
  Report Type: Report from Study
  Country: EU (occurrence: EU)
  Receive Date: 20251222
  Receipt Date: 20251222
  Transmission Date: 20260117
  Serious: Yes (Hospitalization)
  Sender: ABBVIE
  Company Number: EU-ABBVIE-6120863

PATIENT
  Age: 73 Year
  Sex: Male

DRUGS (6)
  1. FOSCARBIDOPA\FOSLEVODOPA [Suspect]
     Active Substance: FOSCARBIDOPA\FOSLEVODOPA
     Indication: Parkinson^s disease
     Dosage: CRN 0.28 ML/H; CR:0.37 ML/H; CRH: 0.28 ML/H; ED: 0.30 ML
     Route: 058
     Dates: start: 20241017
  2. FOSCARBIDOPA\FOSLEVODOPA [Suspect]
     Active Substance: FOSCARBIDOPA\FOSLEVODOPA
     Dosage: CRN: 0.28 ML/H; CR 0.37 ML/H; CRH: 0.41 ML/H ED 0.30 ML
     Route: 058
  3. FOSCARBIDOPA\FOSLEVODOPA [Suspect]
     Active Substance: FOSCARBIDOPA\FOSLEVODOPA
     Dosage: CRN: 0.30 ML/H; CR 0.40 ML/H; CRH: 0.41 ML/H ED 0.30 ML
     Route: 058
     Dates: start: 2025, end: 2025
  4. FOSCARBIDOPA\FOSLEVODOPA [Suspect]
     Active Substance: FOSCARBIDOPA\FOSLEVODOPA
     Dosage: CRN: 0.30 ML/H; CR 0.40 ML; CRH 0.44 ML/H; EXTRA DOSE 0.30 ML WITH 1-HOUR BLOCKING TIME
     Route: 058
     Dates: start: 2025
  5. ROPINIROLE [Concomitant]
     Active Substance: ROPINIROLE
     Indication: Product used for unknown indication
  6. ROPINIROLE [Concomitant]
     Active Substance: ROPINIROLE
     Indication: Product used for unknown indication
     Dosage: DOSE REDUCED

REACTIONS (16)
  - Erysipelas [Not Recovered/Not Resolved]
  - Hypokinesia [Recovering/Resolving]
  - Hallucination [Not Recovered/Not Resolved]
  - Neck pain [Not Recovered/Not Resolved]
  - Wrong technique in device usage process [Unknown]
  - Fatigue [Not Recovered/Not Resolved]
  - Freezing phenomenon [Unknown]
  - Inflammation [Not Recovered/Not Resolved]
  - Feeling hot [Unknown]
  - Erythema [Unknown]
  - Infusion site erythema [Unknown]
  - Tremor [Not Recovered/Not Resolved]
  - Weight increased [Not Recovered/Not Resolved]
  - Infusion site warmth [Unknown]
  - Mobility decreased [Unknown]
  - Limb injury [Not Recovered/Not Resolved]

NARRATIVE: CASE EVENT DATE: 20240101
